FAERS Safety Report 17253498 (Version 4)
Quarter: 2020Q4

REPORT INFORMATION
  Report Type: Report from Study
  Country: US (occurrence: US)
  Receive Date: 20200109
  Receipt Date: 20201224
  Transmission Date: 20210113
  Serious: Yes (Other)
  Sender: FDA-Public Use
  Company Number: NVSC2020US003862

PATIENT
  Age: 34 Year
  Sex: Female

DRUGS (2)
  1. ENTRESTO [Suspect]
     Active Substance: SACUBITRIL\VALSARTAN
     Indication: CARDIAC DISORDER
     Dosage: 1 DF (49/51 MG), ONCE2SDO
     Route: 048
     Dates: start: 201912, end: 20200519
  2. ENTRESTO [Suspect]
     Active Substance: SACUBITRIL\VALSARTAN
     Indication: CARDIAC FAILURE

REACTIONS (8)
  - Dyspnoea [Unknown]
  - Infected cyst [Unknown]
  - Anxiety [Unknown]
  - Fatigue [Recovering/Resolving]
  - Limb discomfort [Recovered/Resolved]
  - Weight decreased [Unknown]
  - Product use in unapproved indication [Unknown]
  - Echocardiogram abnormal [Unknown]

NARRATIVE: CASE EVENT DATE: 201912
